FAERS Safety Report 6804917-X (Version None)
Quarter: 2010Q2

REPORT INFORMATION
  Report Type: 
  Country: None (occurrence: None)
  Receive Date: 20100628
  Receipt Date: 20070726
  Transmission Date: 20101027
  Serious: No
  Sender: FDA-Public Use
  Company Number: US-PFIZER INC-2007053408

PATIENT
  Sex: Male
  Weight: 77.11 kg

DRUGS (5)
  1. GEODON [Suspect]
     Indication: PANIC DISORDER
     Route: 048
     Dates: start: 20070612, end: 20070613
  2. GEODON [Suspect]
     Indication: BIPOLAR DISORDER
  3. CYMBALTA [Concomitant]
  4. LAMICTAL [Concomitant]
  5. DOXYCYCLINE [Concomitant]

REACTIONS (3)
  - ANXIETY [None]
  - PYREXIA [None]
  - SALIVARY HYPERSECRETION [None]
